FAERS Safety Report 10885804 (Version 1)
Quarter: 2015Q1

REPORT INFORMATION
  Report Type: Spontaneous
  Country: US (occurrence: None)
  Receive Date: 20150227
  Receipt Date: 20150227
  Transmission Date: 20150721
  Serious: Yes (Hospitalization)
  Sender: FDA-Public Use
  Company Number: None

PATIENT
  Age: 62 Year
  Sex: Male
  Weight: 80.7 kg

DRUGS (1)
  1. CARBAMAZEPINE. [Suspect]
     Active Substance: CARBAMAZEPINE
     Indication: SEIZURE
     Dates: start: 20130510, end: 20141204

REACTIONS (3)
  - Mental status changes [None]
  - Anticonvulsant drug level above therapeutic [None]
  - Toxicity to various agents [None]

NARRATIVE: CASE EVENT DATE: 20141205
